FAERS Safety Report 5195951-7 (Version None)
Quarter: 2006Q4

REPORT INFORMATION
  Report Type: 
  Country: None (occurrence: None)
  Receive Date: 20061227
  Receipt Date: 20061214
  Transmission Date: 20070319
  Serious: Yes (Death)
  Sender: FDA-Public Use
  Company Number: ALK_0023_2006

PATIENT
  Age: 53 Year
  Sex: Male

DRUGS (1)
  1. VIVITROL [Suspect]
     Indication: ALCOHOLISM
     Dosage: 380 MG ONCE IM
     Route: 030
     Dates: start: 20060906, end: 20060906

REACTIONS (3)
  - ARRHYTHMIA [None]
  - CARDIOMEGALY [None]
  - CARDIOMYOPATHY [None]
